FAERS Safety Report 7417159-4 (Version None)
Quarter: 2011Q2

REPORT INFORMATION
  Report Type: 
  Country: None (occurrence: None)
  Receive Date: 20110415
  Receipt Date: 20110317
  Transmission Date: 20111010
  Serious: Yes (Hospitalization, Disabling, Other)
  Sender: FDA-Public Use
  Company Number: US-BAYER-201037370NA

PATIENT
  Age: 52 Year
  Sex: Female
  Weight: 69.841 kg

DRUGS (6)
  1. YASMIN [Suspect]
     Indication: PRODUCT USED FOR UNKNOWN INDICATION
     Route: 048
     Dates: start: 20070924, end: 20071226
  2. VERAMYST [Concomitant]
     Indication: MULTIPLE ALLERGIES
     Dosage: UNK
     Route: 055
     Dates: start: 20070101
  3. YAZ [Suspect]
     Indication: PRODUCT USED FOR UNKNOWN INDICATION
     Route: 048
     Dates: start: 20070924, end: 20071226
  4. SYNTHROID [Concomitant]
     Indication: HYPOTHYROIDISM
     Dosage: 100 MCG/24HR, UNK
     Route: 048
     Dates: start: 20070101
  5. ALLEGRA [Concomitant]
  6. FEXOFENADINE [Concomitant]
     Indication: MULTIPLE ALLERGIES
     Dosage: UNK
     Route: 048
     Dates: start: 20070101

REACTIONS (7)
  - GALLBLADDER INJURY [None]
  - BILE DUCT STONE [None]
  - EMOTIONAL DISTRESS [None]
  - MYOCARDIAL INFARCTION [None]
  - PAIN [None]
  - SCAR [None]
  - CHOLECYSTITIS ACUTE [None]
